FAERS Safety Report 22859598 (Version 2)
Quarter: 2024Q1

REPORT INFORMATION
  Report Type: Spontaneous
  Country: US (occurrence: US)
  Receive Date: 20230824
  Receipt Date: 20240103
  Transmission Date: 20240410
  Serious: No
  Sender: FDA-Public Use
  Company Number: US-SA-SAC20230821001118

PATIENT
  Age: 5 Year
  Sex: Female

DRUGS (1)
  1. DUPIXENT [Suspect]
     Active Substance: DUPILUMAB
     Indication: Eczema
     Dosage: 300 MG, Q4W
     Route: 058
     Dates: start: 20230717

REACTIONS (9)
  - Oropharyngeal pain [Unknown]
  - Nasopharyngitis [Unknown]
  - Cough [Unknown]
  - Eczema [Unknown]
  - Erythema [Unknown]
  - Therapeutic product effect incomplete [Unknown]
  - Dry eye [Unknown]
  - Rash [Unknown]
  - Therapeutic response shortened [Unknown]

NARRATIVE: CASE EVENT DATE: 20230101
